FAERS Safety Report 22104691 (Version 1)
Quarter: 2023Q1

REPORT INFORMATION
  Report Type: Spontaneous
  Country: US (occurrence: US)
  Receive Date: 20230316
  Receipt Date: 20230316
  Transmission Date: 20230418
  Serious: No
  Sender: FDA-Public Use
  Company Number: US-BRISTOL-MYERS SQUIBB COMPANY-2023-013771

PATIENT
  Age: 84 Year
  Sex: Male

DRUGS (2)
  1. POMALYST [Suspect]
     Active Substance: POMALIDOMIDE
     Indication: Plasma cell myeloma
     Dosage: FREQUENCY: WITHOUT FOOD AT SAME TIME DAILY FOR 21 DAYS THEN 7 DAYS OFF.
     Route: 048
  2. POMALYST [Suspect]
     Active Substance: POMALIDOMIDE
     Dosage: FREQUENCY: WITHOUT FOOD AT SAME TIME DAILY FOR 21 DAYS THEN 7 DAYS OFF.
     Route: 048
     Dates: start: 20220715

REACTIONS (1)
  - Illness [Recovered/Resolved]
